FAERS Safety Report 23001954 (Version 2)
Quarter: 2023Q4

REPORT INFORMATION
  Report Type: Spontaneous
  Country: ES (occurrence: ES)
  Receive Date: 20230928
  Receipt Date: 20231009
  Transmission Date: 20240109
  Serious: Yes (Other)
  Sender: FDA-Public Use
  Company Number: ES-TEVA-2023-ES-2929885

PATIENT
  Age: 51 Year
  Sex: Female

DRUGS (13)
  1. BORTEZOMIB [Suspect]
     Active Substance: BORTEZOMIB
     Indication: Plasma cell leukaemia
     Dosage: VCD REGIMEN
     Route: 065
     Dates: start: 2017
  2. DOXORUBICIN [Suspect]
     Active Substance: DOXORUBICIN
     Indication: Plasma cell leukaemia
     Dosage: VTD-PACE REGIMEN
     Route: 065
     Dates: start: 2016
  3. ETOPOSIDE [Suspect]
     Active Substance: ETOPOSIDE
     Indication: Plasma cell leukaemia
     Dosage: VTD-PACE REGIMEN
     Route: 065
     Dates: start: 2016
  4. BORTEZOMIB [Suspect]
     Active Substance: BORTEZOMIB
     Indication: Plasma cell leukaemia
     Dosage: VTD-PACE REGIMEN,
     Route: 065
     Dates: start: 2016
  5. THALIDOMIDE [Suspect]
     Active Substance: THALIDOMIDE
     Indication: Plasma cell leukaemia
     Dosage: VTD-PACE REGIMEN
     Route: 065
     Dates: start: 2016
  6. DEXAMETHASONE [Suspect]
     Active Substance: DEXAMETHASONE
     Indication: Plasma cell leukaemia
     Dosage: VTD-PACE REGIMEN
     Route: 065
     Dates: start: 2016
  7. DEXAMETHASONE [Suspect]
     Active Substance: DEXAMETHASONE
     Dosage: KRD REGIMEN
     Route: 065
     Dates: start: 2017
  8. DEXAMETHASONE [Suspect]
     Active Substance: DEXAMETHASONE
     Dosage: VCD REGIMEN
     Route: 065
     Dates: start: 2017
  9. CISPLATIN [Suspect]
     Active Substance: CISPLATIN
     Indication: Plasma cell leukaemia
     Dosage: VTD-PACE REGIMEN
     Route: 065
     Dates: start: 2016
  10. CYCLOPHOSPHAMIDE [Suspect]
     Active Substance: CYCLOPHOSPHAMIDE
     Indication: Plasma cell leukaemia
     Dosage: VTD-PACE REGIMEN
     Route: 065
     Dates: start: 2016
  11. CYCLOPHOSPHAMIDE [Suspect]
     Active Substance: CYCLOPHOSPHAMIDE
     Dosage: VCD REGIMEN
     Route: 065
     Dates: start: 2017
  12. CARFILZOMIB [Suspect]
     Active Substance: CARFILZOMIB
     Indication: Plasma cell leukaemia
     Dosage: KRD REGIMEN
     Route: 065
     Dates: start: 2017
  13. LENALIDOMIDE [Suspect]
     Active Substance: LENALIDOMIDE
     Indication: Plasma cell leukaemia
     Dosage: KRD REGIMEN
     Route: 065
     Dates: start: 2017

REACTIONS (3)
  - Graft versus host disease [Unknown]
  - Dry eye [Unknown]
  - Neuropathy peripheral [Unknown]

NARRATIVE: CASE EVENT DATE: 20160101
